FAERS Safety Report 7554680-2 (Version None)
Quarter: 2011Q2

REPORT INFORMATION
  Report Type: 
  Country: None (occurrence: None)
  Receive Date: 20110617
  Receipt Date: 20110602
  Transmission Date: 20111010
  Serious: Yes (Hospitalization)
  Sender: FDA-Public Use
  Company Number: KR-PURDUE-MAG-2011-0001522

PATIENT
  Sex: Male

DRUGS (9)
  1. OXYCODONE HCL [Suspect]
     Dosage: 10 MG, BID
     Dates: start: 20110519, end: 20110525
  2. TAMSULOSIN HCL [Concomitant]
     Indication: DYSURIA
     Dosage: 1 TABLET, DAILY
     Route: 048
     Dates: start: 20080120
  3. OXYCODONE HCL [Suspect]
     Indication: PRODUCT USED FOR UNKNOWN INDICATION
     Dosage: 20 MG, BID
     Dates: start: 20110525
  4. CHLORPHENESIN [Concomitant]
     Indication: OEDEMA PERIPHERAL
     Dosage: 2 TABLET, DAILY
     Route: 048
     Dates: start: 20110323
  5. STREPTOMYCIN [Concomitant]
     Indication: OEDEMA PERIPHERAL
     Dosage: 2 TABLET, DAILY
     Dates: start: 20110523
  6. RANITIDINE                         /00550802/ [Concomitant]
     Indication: PROPHYLAXIS
     Dosage: 2 TABLET, DAILY
     Dates: start: 20110323
  7. VITIS VINIFERA LEAF [Concomitant]
     Indication: OEDEMA PERIPHERAL
     Dosage: 2 CAPSL, DAILY
     Route: 048
     Dates: start: 20110323
  8. AMLODIPINE MALEATE [Concomitant]
     Indication: HYPERTENSION
     Dosage: 1 TABLET, DAILY
     Dates: start: 20070713
  9. FUROSEMIDE [Concomitant]
     Indication: OEDEMA PERIPHERAL
     Dosage: 0.5 TABLET, DAILY
     Route: 048
     Dates: start: 20100226

REACTIONS (1)
  - COLONIC OBSTRUCTION [None]
